FAERS Safety Report 8905666 (Version 1)
Quarter: 2012Q4

REPORT INFORMATION
  Report Type: 
  Country: JP (occurrence: JP)
  Receive Date: 20121111
  Receipt Date: 20121111
  Transmission Date: 20130627
  Serious: Yes (Other)
  Sender: FDA-Public Use
  Company Number: PHHY2012JP102821

PATIENT
  Age: 70 Year
  Sex: Female
  Weight: 41 kg

DRUGS (11)
  1. ZOMETA [Suspect]
     Indication: BREAST CANCER
     Dosage: UNK (once every 4 weeks)
     Route: 042
     Dates: start: 20110204, end: 20120330
  2. DENOSUMAB [Suspect]
     Indication: BREAST CANCER
     Dosage: 120 mg, UNK
     Dates: start: 201204, end: 20120914
  3. PROTECADIN [Concomitant]
     Dosage: UNK
     Dates: start: 20110408
  4. LYRICA [Concomitant]
     Dosage: UNK
     Dates: start: 20111214
  5. HALCION [Concomitant]
     Dosage: UNK
     Dates: start: 20090814
  6. DETRUSITOL [Concomitant]
     Dosage: UNK
     Dates: start: 20120924
  7. LIPITOR [Concomitant]
     Dosage: UNK
     Dates: start: 20120420
  8. MAGLAX [Concomitant]
     Dosage: UNK
     Dates: start: 20100924
  9. MERISLON [Concomitant]
  10. TRAVELMIN [Concomitant]
  11. FASLODEX [Concomitant]
     Dosage: UNK
     Dates: start: 20120406

REACTIONS (9)
  - Osteonecrosis of jaw [Not Recovered/Not Resolved]
  - Osteomyelitis [Not Recovered/Not Resolved]
  - Gingival swelling [Unknown]
  - Tooth resorption [Unknown]
  - Gingival inflammation [Unknown]
  - Primary sequestrum [Unknown]
  - Dental fistula [Unknown]
  - White blood cell count decreased [Unknown]
  - Hyperlipidaemia [Unknown]
